FAERS Safety Report 19509657 (Version 2)
Quarter: 2021Q3

REPORT INFORMATION
  Report Type: Report from Study
  Country: ES (occurrence: ES)
  Receive Date: 20210708
  Receipt Date: 20210712
  Transmission Date: 20211014
  Serious: Yes (Death, Hospitalization)
  Sender: FDA-Public Use
  Company Number: ES-PFIZER INC-2021802596

PATIENT
  Age: 74 Year
  Sex: Male

DRUGS (13)
  1. CISATRACURIO ACCORD [Concomitant]
     Indication: HYPOTONIA
     Dosage: UNK
     Route: 042
     Dates: start: 20200324, end: 20200410
  2. DEXAMETASONA KERN PHARMA [Concomitant]
     Active Substance: DEXAMETHASONE
     Indication: ACUTE RESPIRATORY DISTRESS SYNDROME
     Dosage: UNK
     Route: 042
     Dates: start: 20200325, end: 20200331
  3. FENTANEST [FENTANYL CITRATE] [Concomitant]
     Indication: LIGHT ANAESTHESIA
     Dosage: UNK
     Route: 042
     Dates: start: 20200401, end: 20200410
  4. DOPAMINA GRIFOLS [Concomitant]
     Indication: ACUTE RESPIRATORY DISTRESS SYNDROME
     Dosage: UNK
     Route: 042
     Dates: start: 20200324, end: 20200410
  5. AZITHROMYCIN ANHYDROUS. [Suspect]
     Active Substance: AZITHROMYCIN ANHYDROUS
     Indication: ACUTE RESPIRATORY DISTRESS SYNDROME
     Dosage: UNK
     Route: 042
     Dates: start: 20200323, end: 20200413
  6. DEXDOR [Concomitant]
     Active Substance: DEXMEDETOMIDINE HYDROCHLORIDE
     Indication: LIGHT ANAESTHESIA
     Dosage: UNK
     Route: 042
     Dates: start: 20200406, end: 20200409
  7. PANTOPRAZOLE [Suspect]
     Active Substance: PANTOPRAZOLE
     Indication: ACUTE RESPIRATORY DISTRESS SYNDROME
     Dosage: 40 MILLIGRAM, QD
     Route: 042
     Dates: start: 20200323, end: 20200410
  8. NORADRENALINA [NOREPINEPHRINE HYDROCHLORIDE] [Concomitant]
     Indication: ACUTE RESPIRATORY DISTRESS SYNDROME
     Dosage: UNK (CONCENTRATE AND SOLVENT FOR SOLUTION FOR INFUSION)
     Route: 042
     Dates: start: 20200326, end: 20200409
  9. DOPAMINA GRIFOLS [Concomitant]
     Dosage: UNK
  10. LINEZOLID. [Suspect]
     Active Substance: LINEZOLID
     Indication: ACUTE RESPIRATORY DISTRESS SYNDROME
     Dosage: UNK
     Route: 042
     Dates: start: 20200330, end: 20200410
  11. TRANGOREX [Suspect]
     Active Substance: AMIODARONE HYDROCHLORIDE
     Indication: ACUTE RESPIRATORY DISTRESS SYNDROME
     Dosage: UNK (150 MG/3 ML )
     Route: 042
     Dates: start: 20200405, end: 20200410
  12. MIDAZOLAM ACCORD [Concomitant]
     Active Substance: MIDAZOLAM HYDROCHLORIDE
     Indication: LIGHT ANAESTHESIA
     Dosage: UNK
     Route: 042
     Dates: start: 20200327, end: 20200409
  13. MEROPENEM. [Suspect]
     Active Substance: MEROPENEM
     Indication: ACUTE RESPIRATORY DISTRESS SYNDROME
     Dosage: UNK
     Route: 042
     Dates: start: 20200324, end: 20200413

REACTIONS (1)
  - SJS-TEN overlap [Fatal]

NARRATIVE: CASE EVENT DATE: 20200410
